FAERS Safety Report 8391345-1 (Version None)
Quarter: 2012Q2

REPORT INFORMATION
  Report Type: 
  Country: None (occurrence: None)
  Receive Date: 20120529
  Receipt Date: 20120521
  Transmission Date: 20120825
  Serious: Yes (Hospitalization, Other)
  Sender: FDA-Public Use
  Company Number: US-JNJFOC-20111012945

PATIENT
  Sex: Male
  Weight: 111.13 kg

DRUGS (3)
  1. LEVAQUIN [Suspect]
     Indication: PNEUMONIA
     Route: 048
     Dates: start: 20090901
  2. METHYLPREDNISOLONE [Suspect]
     Indication: PNEUMONIA
     Route: 065
  3. PAXIL [Concomitant]
     Indication: PANIC ATTACK
     Route: 065

REACTIONS (2)
  - TENDON RUPTURE [None]
  - TENOSYNOVITIS [None]
